FAERS Safety Report 25241240 (Version 3)
Quarter: 2025Q2

REPORT INFORMATION
  Report Type: Spontaneous
  Country: BR (occurrence: BR)
  Receive Date: 20250425
  Receipt Date: 20250605
  Transmission Date: 20250716
  Serious: No
  Sender: PFIZER
  Company Number: BR-PFIZER INC-202500087444

PATIENT

DRUGS (1)
  1. DEPO-PROVERA [Suspect]
     Active Substance: MEDROXYPROGESTERONE ACETATE

REACTIONS (3)
  - Incorrect dose administered by device [Unknown]
  - Device leakage [Unknown]
  - Exposure via skin contact [Unknown]
